FAERS Safety Report 16383134 (Version 2)
Quarter: 2019Q3

REPORT INFORMATION
  Report Type: Report from Study
  Country: US (occurrence: US)
  Receive Date: 20190603
  Receipt Date: 20190729
  Transmission Date: 20191004
  Serious: Yes (Hospitalization)
  Sender: FDA-Public Use
  Company Number: US-PFIZER INC-2018379611

PATIENT
  Age: 51 Year
  Sex: Female

DRUGS (2)
  1. ARIMIDEX [Concomitant]
     Active Substance: ANASTROZOLE
     Dosage: UNK
  2. IBRANCE [Suspect]
     Active Substance: PALBOCICLIB
     Indication: BREAST CANCER METASTATIC
     Dosage: 125 MG, CYCLIC (DAILY, 3 WEEKS ON AND 1 WEEK OFF FOR 21 DAYS)
     Route: 048
     Dates: start: 20180903, end: 201904

REACTIONS (18)
  - Abdominal pain upper [Recovering/Resolving]
  - Anxiety [Unknown]
  - Stress [Unknown]
  - Rash [Recovering/Resolving]
  - Joint swelling [Recovered/Resolved]
  - Breast pain [Recovering/Resolving]
  - Neoplasm progression [Unknown]
  - Product dose omission [Unknown]
  - Asthenia [Unknown]
  - Peripheral swelling [Recovered/Resolved]
  - Poor quality sleep [Unknown]
  - Oedema [Recovering/Resolving]
  - Arthritis [Recovered/Resolved]
  - Abdominal pain [Unknown]
  - Abdominal discomfort [Recovering/Resolving]
  - Exercise lack of [Not Recovered/Not Resolved]
  - Blood pressure increased [Recovering/Resolving]
  - Road traffic accident [Unknown]

NARRATIVE: CASE EVENT DATE: 2018
